FAERS Safety Report 13641128 (Version 3)
Quarter: 2017Q3

REPORT INFORMATION
  Report Type: Report from Study
  Country: None (occurrence: PT)
  Receive Date: 20170612
  Receipt Date: 20170717
  Transmission Date: 20171127
  Serious: Yes (Hospitalization, Other)
  Sender: FDA-Public Use
  Company Number: PT-ABBVIE-17K-130-2002682-00

PATIENT
  Sex: Female

DRUGS (2)
  1. HUMIRA [Suspect]
     Active Substance: ADALIMUMAB
     Indication: ANKYLOSING SPONDYLITIS
     Route: 058
     Dates: start: 20161203, end: 20161217
  2. HUMIRA [Suspect]
     Active Substance: ADALIMUMAB
     Route: 058
     Dates: start: 20170107, end: 201703

REACTIONS (14)
  - Head injury [Recovered/Resolved]
  - Asthenia [Recovering/Resolving]
  - High density lipoprotein increased [Unknown]
  - Syncope [Unknown]
  - Fatigue [Recovering/Resolving]
  - Blood triglycerides increased [Unknown]
  - Palpitations [Recovering/Resolving]
  - Syncope [Recovered/Resolved]
  - Heart rate increased [Recovering/Resolving]
  - Arterial occlusive disease [Recovering/Resolving]
  - Hyperhidrosis [Recovered/Resolved]
  - Dyspnoea [Recovering/Resolving]
  - Oedema peripheral [Recovering/Resolving]
  - Low density lipoprotein increased [Unknown]

NARRATIVE: CASE EVENT DATE: 2017
